FAERS Safety Report 12749750 (Version 1)
Quarter: 2016Q3

REPORT INFORMATION
  Report Type: Spontaneous
  Country: US (occurrence: US)
  Receive Date: 20160916
  Receipt Date: 20160916
  Transmission Date: 20161109
  Serious: Yes (Disabling)
  Sender: FDA-Public Use
  Company Number: US-AMGEN-USASP2016114594

PATIENT
  Age: 62 Year
  Sex: Female
  Weight: 78.5 kg

DRUGS (1)
  1. REPATHA [Suspect]
     Active Substance: EVOLOCUMAB
     Indication: HYPERLIPIDAEMIA
     Dosage: 140 MG, Q2WK
     Route: 058
     Dates: start: 20160801, end: 20160824

REACTIONS (4)
  - Headache [Recovered/Resolved]
  - Muscular weakness [Recovered/Resolved]
  - Lethargy [Unknown]
  - Influenza like illness [Unknown]

NARRATIVE: CASE EVENT DATE: 2016
